FAERS Safety Report 5278396-0 (Version None)
Quarter: 2007Q1

REPORT INFORMATION
  Report Type: 
  Country: None (occurrence: None)
  Receive Date: 20070322
  Receipt Date: 20070306
  Transmission Date: 20070707
  Serious: Yes (Hospitalization)
  Sender: FDA-Public Use
  Company Number: DSA_29583_2007

PATIENT
  Age: 77 Year
  Sex: Male

DRUGS (6)
  1. TILDIEM [Suspect]
     Indication: ESSENTIAL HYPERTENSION
     Dosage: 60 MG BID PO
     Route: 048
     Dates: start: 20070105, end: 20070205
  2. LASIX [Suspect]
     Indication: OEDEMA
     Dosage: 1 G Q DAY IV
     Route: 042
     Dates: start: 20061202
  3. ELISOR [Suspect]
     Dosage: 20 MG Q DAY PO
     Route: 048
     Dates: start: 20061215
  4. OMEPRAZOLE [Suspect]
     Indication: OESOPHAGITIS
     Dosage: 40 MG Q DAY IV
     Route: 042
     Dates: start: 20061103
  5. MADOPAR [Suspect]
     Indication: PARKINSON'S DISEASE
     Dosage: 62.5 MG TID PO
     Route: 048
     Dates: start: 20070124, end: 20070101
  6. MADOPAR [Suspect]
     Indication: PARKINSON'S DISEASE
     Dosage: DF PO
     Route: 048
     Dates: start: 20070205

REACTIONS (3)
  - ECZEMA [None]
  - RASH ERYTHEMATOUS [None]
  - RASH MACULAR [None]
